FAERS Safety Report 14603831 (Version 2)
Quarter: 2018Q2

REPORT INFORMATION
  Report Type: Spontaneous
  Country: US (occurrence: US)
  Receive Date: 20180306
  Receipt Date: 20180422
  Transmission Date: 20180711
  Serious: Yes (Hospitalization, Other)
  Sender: FDA-Public Use
  Company Number: US-APOTEX-2018AP007760

PATIENT
  Age: 27 Year
  Sex: Female

DRUGS (2)
  1. ALPRAZOLAM. [Suspect]
     Active Substance: ALPRAZOLAM
     Indication: PRODUCT USED FOR UNKNOWN INDICATION
     Dosage: 30 TABLETS OF 0.5 MG
     Route: 065
  2. BUPROPION. [Suspect]
     Active Substance: BUPROPION
     Indication: PRODUCT USED FOR UNKNOWN INDICATION
     Dosage: 30 TABLETS OF 150 MG
     Route: 065

REACTIONS (9)
  - Electrocardiogram QT prolonged [Unknown]
  - Overdose [Unknown]
  - Agitation [Unknown]
  - Suicide attempt [Unknown]
  - Tremor [Unknown]
  - Tachypnoea [Unknown]
  - Tachycardia [Unknown]
  - Mental status changes [Unknown]
  - Erythema multiforme [Recovered/Resolved]
